FAERS Safety Report 20539970 (Version 2)
Quarter: 2022Q1

REPORT INFORMATION
  Report Type: Report from Study
  Country: CA (occurrence: CA)
  Receive Date: 20220302
  Receipt Date: 20220328
  Transmission Date: 20220424
  Serious: Yes (Hospitalization, Other)
  Sender: FDA-Public Use
  Company Number: CA-JNJFOC-20210944405

PATIENT
  Age: 43 Year
  Sex: Female
  Weight: 50 kg

DRUGS (2)
  1. REMICADE [Suspect]
     Active Substance: INFLIXIMAB
     Indication: Takayasu^s arteritis
     Route: 042
     Dates: start: 20210624, end: 2021
  2. REMICADE [Suspect]
     Active Substance: INFLIXIMAB
     Route: 042
     Dates: start: 2021

REACTIONS (4)
  - Peripheral arterial occlusive disease [Recovering/Resolving]
  - Aortitis [Unknown]
  - Takayasu^s arteritis [Not Recovered/Not Resolved]
  - Incision site complication [Recovering/Resolving]

NARRATIVE: CASE EVENT DATE: 20210901
